FAERS Safety Report 20092088 (Version 2)
Quarter: 2021Q4

REPORT INFORMATION
  Report Type: Spontaneous
  Country: TR (occurrence: TR)
  Receive Date: 20211119
  Receipt Date: 20211123
  Transmission Date: 20220303
  Serious: Yes (Other)
  Sender: FDA-Public Use
  Company Number: TR-PFIZER INC-202101553718

PATIENT
  Sex: Female

DRUGS (1)
  1. AVIBACTAM SODIUM\CEFTAZIDIME [Suspect]
     Active Substance: AVIBACTAM SODIUM\CEFTAZIDIME
     Indication: Klebsiella infection
     Dosage: UNK, 3X/DAY (EVERY 8 HOURS, 2 HOURS LENGTH INFUSION)
     Route: 042
     Dates: start: 2021

REACTIONS (4)
  - Generalised tonic-clonic seizure [Unknown]
  - Hypoglycaemia [Unknown]
  - Epilepsy [Unknown]
  - Off label use [Unknown]

NARRATIVE: CASE EVENT DATE: 20210101
